FAERS Safety Report 4945687-X (Version None)
Quarter: 2006Q1

REPORT INFORMATION
  Report Type: 
  Country: None (occurrence: None)
  Receive Date: 20060117
  Receipt Date: 20041129
  Transmission Date: 20060701
  Serious: Yes (Hospitalization)
  Sender: FDA-Public Use
  Company Number: A03200402548

PATIENT
  Age: 79 Year
  Sex: Male
  Weight: 67.1324 kg

DRUGS (4)
  1. PLAVIX [Suspect]
     Indication: CARDIAC DISORDER
     Dosage: 75 MG QD ORAL
     Route: 048
     Dates: start: 20030101, end: 20040901
  2. PLAVIX [Suspect]
     Indication: STENT PLACEMENT
     Dosage: 75 MG QD ORAL
     Route: 048
     Dates: start: 20030101, end: 20040901
  3. ACETYLSALICYLIC ACID SRT [Concomitant]
  4. PERINDOPRIL ERBUMINE [Concomitant]

REACTIONS (3)
  - DEHYDRATION [None]
  - POST PROCEDURAL HAEMORRHAGE [None]
  - WEIGHT DECREASED [None]
